FAERS Safety Report 25273864 (Version 2)
Quarter: 2025Q3

REPORT INFORMATION
  Report Type: Spontaneous
  Country: EU (occurrence: EU)
  Receive Date: 20250506
  Receipt Date: 20250723
  Transmission Date: 20251021
  Serious: Yes (Death, Life-Threatening, Hospitalization)
  Sender: DR REDDYS
  Company Number: None

PATIENT
  Age: 4 Year
  Sex: Male

DRUGS (14)
  1. RITUXIMAB [Suspect]
     Active Substance: RITUXIMAB
     Indication: Burkitt^s lymphoma stage IV
  2. RITUXIMAB [Suspect]
     Active Substance: RITUXIMAB
     Indication: Non-Hodgkin^s lymphoma
  3. CYCLOPHOSPHAMIDE [Suspect]
     Active Substance: CYCLOPHOSPHAMIDE
     Indication: Burkitt^s lymphoma stage IV
  4. CYCLOPHOSPHAMIDE [Suspect]
     Active Substance: CYCLOPHOSPHAMIDE
     Indication: Non-Hodgkin^s lymphoma
  5. DOXORUBICIN [Suspect]
     Active Substance: DOXORUBICIN
     Indication: Burkitt^s lymphoma stage IV
  6. DOXORUBICIN [Suspect]
     Active Substance: DOXORUBICIN
     Indication: Non-Hodgkin^s lymphoma
  7. VINCRISTINE [Suspect]
     Active Substance: VINCRISTINE
     Indication: Burkitt^s lymphoma stage IV
  8. VINCRISTINE [Suspect]
     Active Substance: VINCRISTINE
     Indication: Non-Hodgkin^s lymphoma
  9. PREDNISONE [Suspect]
     Active Substance: PREDNISONE
     Indication: Burkitt^s lymphoma stage IV
  10. PREDNISONE [Suspect]
     Active Substance: PREDNISONE
     Indication: Non-Hodgkin^s lymphoma
  11. METHOTREXATE [Suspect]
     Active Substance: METHOTREXATE
     Indication: Burkitt^s lymphoma stage IV
  12. METHOTREXATE [Suspect]
     Active Substance: METHOTREXATE
     Indication: Non-Hodgkin^s lymphoma
  13. SULFAMETHOXAZOLE\TRIMETHOPRIM [Concomitant]
     Active Substance: SULFAMETHOXAZOLE\TRIMETHOPRIM
     Indication: Prophylaxis
  14. MICAFUNGIN [Concomitant]
     Active Substance: MICAFUNGIN SODIUM
     Indication: Prophylaxis

REACTIONS (7)
  - Systemic mycosis [Fatal]
  - Septic shock [Fatal]
  - Multiple organ dysfunction syndrome [Fatal]
  - Neutropenia [Unknown]
  - Clostridial sepsis [Unknown]
  - Pneumonia [Unknown]
  - Stenotrophomonas infection [Unknown]
